FAERS Safety Report 9920022 (Version 1)
Quarter: 2014Q1

REPORT INFORMATION
  Report Type: Spontaneous
  Country: GB (occurrence: GB)
  Receive Date: 20140224
  Receipt Date: 20140224
  Transmission Date: 20141002
  Serious: Yes (Hospitalization, Other)
  Sender: FDA-Public Use
  Company Number: GB-ACTAVIS-2014-02746

PATIENT
  Age: 54 Year
  Sex: Female

DRUGS (1)
  1. CO-CODAMOL [Suspect]
     Indication: PRODUCT USED FOR UNKNOWN INDICATION
     Dosage: 2 DF; TWO 30/500 TABLETS (30 MG CODEINE/500 MG PARACETAMOL)
     Route: 048

REACTIONS (1)
  - Non-cardiogenic pulmonary oedema [Recovered/Resolved]
